FAERS Safety Report 8499273 (Version 4)
Quarter: 2012Q4

REPORT INFORMATION
  Report Type: 
  Country: US (occurrence: US)
  Receive Date: 20120409
  Receipt Date: 20121107
  Transmission Date: 20130627
  Serious: Yes (Hospitalization)
  Sender: FDA-Public Use
  Company Number: US-JNJFOC-20120402207

PATIENT
  Age: 58 Year
  Sex: Female

DRUGS (4)
  1. STELARA [Suspect]
     Indication: PSORIASIS
     Dosage: administered in JANUARY
     Route: 058
  2. STELARA [Suspect]
     Indication: PSORIASIS
     Dosage: administered in DECEMBER
     Route: 058
  3. ISONIAZID [Suspect]
     Indication: TUBERCULOSIS
     Route: 065
  4. SIMVASTATIN [Concomitant]
     Route: 065

REACTIONS (1)
  - Acute hepatic failure [Not Recovered/Not Resolved]
